FAERS Safety Report 8480409-X (Version None)
Quarter: 2012Q3

REPORT INFORMATION
  Report Type: 
  Country: None (occurrence: None)
  Receive Date: 20120702
  Receipt Date: 20120625
  Transmission Date: 20120928
  Serious: Yes (Hospitalization, Other)
  Sender: FDA-Public Use
  Company Number: US-AMGEN-USASP2012032272

PATIENT
  Age: 59 Year
  Sex: Male
  Weight: 97 kg

DRUGS (11)
  1. NPLATE [Suspect]
  2. BUDESONIDE [Concomitant]
     Indication: GRAFT VERSUS HOST DISEASE
     Dosage: 3 MG, UNK
     Route: 048
  3. NPLATE [Suspect]
  4. NPLATE [Suspect]
  5. NPLATE [Suspect]
     Indication: THROMBOCYTOPENIA
     Dosage: 7 MUG/KG, UNK
     Route: 058
     Dates: start: 20120316
  6. NPLATE [Suspect]
  7. NPLATE [Suspect]
  8. POSACONAZOLE [Concomitant]
     Indication: PROPHYLAXIS
     Dosage: 200 MG, UNK
     Route: 048
  9. PREDNISONE TAB [Concomitant]
     Indication: GRAFT VERSUS HOST DISEASE
     Dosage: 20 MG, UNK
     Route: 048
  10. ATOVAQUONE [Concomitant]
     Indication: INFECTION PROPHYLAXIS
     Dosage: 750 MG, BID
     Route: 048
  11. ACYCLOVIR [Concomitant]
     Indication: PROPHYLAXIS
     Dosage: 400 MG, UNK
     Route: 048

REACTIONS (4)
  - THROMBOCYTOPENIA [None]
  - THERAPEUTIC RESPONSE DECREASED [None]
  - RENAL FAILURE ACUTE [None]
  - HAEMOLYTIC ANAEMIA [None]
